FAERS Safety Report 7435700-2 (Version None)
Quarter: 2011Q2

REPORT INFORMATION
  Report Type: 
  Country: None (occurrence: None)
  Receive Date: 20110425
  Receipt Date: 20110419
  Transmission Date: 20111010
  Serious: Yes (Death, Life-Threatening, Hospitalization, Other)
  Sender: FDA-Public Use
  Company Number: PHHY2011US28430

PATIENT
  Sex: Male
  Weight: 108 kg

DRUGS (12)
  1. DIFLUCAN [Concomitant]
  2. DILTIAZEM MALATE [Concomitant]
  3. LASIX [Concomitant]
  4. EXJADE [Suspect]
     Indication: HAEMOCHROMATOSIS
     Dosage: 2125 MG, DAILY
     Route: 048
     Dates: start: 20110119, end: 20110208
  5. LISINOPRIL [Concomitant]
  6. LANTUS [Concomitant]
     Indication: DIABETES MELLITUS
     Dosage: 50 U, UNK
  7. ACTOPLUS MET [Concomitant]
  8. METOPROLOL [Concomitant]
  9. PRAVASTATIN [Concomitant]
  10. GLEEVEC [Concomitant]
  11. PRILOSEC [Concomitant]
  12. VALACICLOVIR [Concomitant]
     Indication: ANTIVIRAL PROPHYLAXIS
     Dosage: 1000 MG, UNK
     Route: 048

REACTIONS (8)
  - FEBRILE NEUTROPENIA [None]
  - HYPOXIA [None]
  - SEPSIS [None]
  - INFLUENZA A VIRUS TEST POSITIVE [None]
  - ACUTE RESPIRATORY DISTRESS SYNDROME [None]
  - MALAISE [None]
  - CLOSTRIDIUM TEST POSITIVE [None]
  - BACTERAEMIA [None]
